FAERS Safety Report 15767774 (Version 6)
Quarter: 2019Q1

REPORT INFORMATION
  Report Type: Spontaneous
  Country: SK (occurrence: SK)
  Receive Date: 20181227
  Receipt Date: 20190304
  Transmission Date: 20190417
  Serious: Yes (Disabling, Other)
  Sender: FDA-Public Use
  Company Number: SK-MYLANLABS-2018M1095955

PATIENT
  Age: 62 Year
  Sex: Female

DRUGS (29)
  1. DIGOXIN. [Concomitant]
     Active Substance: DIGOXIN
     Indication: DYSLIPIDAEMIA
     Dosage: UNK
     Route: 065
  2. CARVEDILOL. [Concomitant]
     Active Substance: CARVEDILOL
     Dosage: 12.5 MILLIGRAM, UNK
     Route: 065
  3. ACETYLSALICYLIC ACID [Concomitant]
     Active Substance: ASPIRIN
     Indication: DYSLIPIDAEMIA
     Dosage: UNK
     Route: 065
  4. BISOPROL [Concomitant]
     Active Substance: BISOPROLOL FUMARATE
     Indication: HYPERTENSION
     Dosage: 5 MILLIGRAM, QD (5 MILLIGRAM, OD)
     Route: 065
  5. COENZYME Q10 [Concomitant]
     Active Substance: UBIDECARENONE
     Indication: MYALGIA
     Dosage: 30 MILLIGRAM, BID (60 MG, QD)
     Route: 065
  6. ROSUVASTATIN. [Suspect]
     Active Substance: ROSUVASTATIN
     Indication: DYSLIPIDAEMIA
     Dosage: UNK
     Route: 048
  7. ATORVASTATIN [Suspect]
     Active Substance: ATORVASTATIN
     Dosage: 80 MILLIGRAM, QD
     Route: 048
     Dates: start: 201502
  8. IVABRADINE [Concomitant]
     Active Substance: IVABRADINE
     Indication: PRODUCT USED FOR UNKNOWN INDICATION
     Dosage: UNK
  9. COENZYM NADH [Concomitant]
     Dosage: UNK
  10. ALIROCUMAB [Concomitant]
     Active Substance: ALIROCUMAB
     Indication: PRODUCT USED FOR UNKNOWN INDICATION
     Dosage: 150 MILLIGRAM, Q2W
     Route: 058
  11. EZETIMIBE. [Suspect]
     Active Substance: EZETIMIBE
     Indication: DYSLIPIDAEMIA
     Dosage: UNK
     Route: 065
  12. FUROSEMIDE. [Concomitant]
     Active Substance: FUROSEMIDE
     Indication: DYSLIPIDAEMIA
     Dosage: UNK (UNK. SPORADIC)
     Route: 065
  13. KANDESARTAN [Concomitant]
     Indication: PRODUCT USED FOR UNKNOWN INDICATION
     Dosage: 16 MILLIGRAM, BID
     Route: 065
  14. FENOFIBRATE/SIMVASTATIN [Suspect]
     Active Substance: FENOFIBRATE\SIMVASTATIN
     Dosage: 215 MG, UNK
     Route: 065
  15. COENZYME Q10 [Concomitant]
     Active Substance: UBIDECARENONE
     Indication: PROPHYLAXIS
     Dosage: UNK
  16. FENOFIBRATE/SIMVASTATIN [Suspect]
     Active Substance: FENOFIBRATE\SIMVASTATIN
     Indication: PRODUCT USED FOR UNKNOWN INDICATION
     Dosage: UNK
     Route: 065
  17. ATORVASTATIN [Suspect]
     Active Substance: ATORVASTATIN
     Indication: DYSLIPIDAEMIA
     Dosage: 80 MILLIGRAM, QD
     Route: 048
     Dates: start: 2015
  18. FENOFIBRATE. [Concomitant]
     Active Substance: FENOFIBRATE
     Dosage: 215 MILLIGRAM, QD
     Route: 048
     Dates: start: 201502
  19. FUROSEMIDE. [Concomitant]
     Active Substance: FUROSEMIDE
     Dosage: 250 MILLIGRAM, UNK
     Route: 065
  20. ATORVASTATIN [Suspect]
     Active Substance: ATORVASTATIN
     Dosage: 80 MILLIGRAM, QD
     Route: 065
  21. SIMVASTATIN. [Suspect]
     Active Substance: SIMVASTATIN
     Indication: DYSLIPIDAEMIA
     Dosage: UNK
     Route: 065
  22. FENOFIBRATE. [Concomitant]
     Active Substance: FENOFIBRATE
     Indication: DYSLIPIDAEMIA
     Dosage: 215 MILLIGRAM, QD
     Route: 065
     Dates: start: 2015
  23. LEVOTHYROXINE. [Concomitant]
     Active Substance: LEVOTHYROXINE
     Indication: PRODUCT USED FOR UNKNOWN INDICATION
     Dosage: 100 MICROGRAM, UNK
     Route: 065
  24. LACIDIPINE [Concomitant]
     Active Substance: LACIDIPINE
     Indication: BLOOD PRESSURE ABNORMAL
     Dosage: 6 MILLIGRAM, UNK (HALF ACCORDING TO PRESSURE MORNING/EVENING)
     Route: 065
  25. ATORVASTATIN CALCIUM W/EZETIMIBE [Suspect]
     Active Substance: ATORVASTATIN CALCIUM\EZETIMIBE
     Indication: DYSLIPIDAEMIA
     Dosage: UNK
     Route: 065
  26. FENOFIBRATE. [Concomitant]
     Active Substance: FENOFIBRATE
     Dosage: 215 MILLIGRAM, UNK
     Route: 065
  27. IVABRADINE [Concomitant]
     Active Substance: IVABRADINE
     Dosage: 5 MILLIGRAM, UNK
     Route: 065
  28. CARVEDILOL. [Concomitant]
     Active Substance: CARVEDILOL
     Indication: DYSLIPIDAEMIA
     Dosage: UNK
  29. WARFARIN SODIUM. [Concomitant]
     Active Substance: WARFARIN SODIUM
     Indication: PRODUCT USED FOR UNKNOWN INDICATION
     Dosage: 5 MILLIGRAM, UNK
     Route: 065

REACTIONS (4)
  - Blood creatine phosphokinase increased [Unknown]
  - Immobile [Unknown]
  - Myalgia [Recovered/Resolved]
  - Drug intolerance [Unknown]

NARRATIVE: CASE EVENT DATE: 2015
